FAERS Safety Report 6641203-5 (Version None)
Quarter: 2010Q1

REPORT INFORMATION
  Report Type: 
  Country: None (occurrence: None)
  Receive Date: 20100318
  Receipt Date: 20100310
  Transmission Date: 20100710
  Serious: Yes (Other)
  Sender: FDA-Public Use
  Company Number: PHEH2007US08568

PATIENT
  Sex: Female

DRUGS (58)
  1. ELIDEL [Suspect]
     Indication: ECZEMA
     Route: 061
     Dates: start: 20040101
  2. BREVOXYL [Concomitant]
  3. DESOWEN [Concomitant]
  4. PHENERGAN ^AVENTIS PHARMA^ [Concomitant]
  5. LORAZEPAM [Concomitant]
  6. DULCOLAX [Concomitant]
  7. ALLOPURINOL [Concomitant]
  8. PERI-COLACE [Concomitant]
  9. AMBIEN [Concomitant]
  10. PHENTERMINE [Concomitant]
     Dosage: 37.5 UNK, UNK
  11. CIPRO [Concomitant]
  12. YASMIN [Concomitant]
  13. NIZORAL [Concomitant]
     Dosage: 200 MG, UNK
  14. CEFOTAN [Concomitant]
  15. DOCUSATE SODIUM [Concomitant]
  16. KETOROLAC TROMETHAMINE [Concomitant]
  17. MORPHINE [Concomitant]
  18. ACETAMINOPHEN [Concomitant]
  19. OXYCODONE HCL AND ACETAMINOPHEN [Concomitant]
  20. IBUPROFEN [Concomitant]
  21. LANOLIN [Concomitant]
  22. NALOXONE [Concomitant]
  23. PROMETHAZINE [Concomitant]
  24. SIMETHICONE [Concomitant]
  25. ZOLPIDEM [Concomitant]
  26. TRIPHASIL-21 [Concomitant]
  27. KETOCONAZOLE [Concomitant]
  28. TRIAMCINOLON E ^LECIVA^ [Concomitant]
  29. ACETASOL HC [Concomitant]
  30. METHYLPREDNISOLONE [Concomitant]
  31. FLOXIN OTIC [Concomitant]
  32. BLEOMYCIN [Concomitant]
  33. DOXORUBICIN [Concomitant]
  34. VINBLASTINE [Concomitant]
  35. DACARBAZINE [Concomitant]
  36. SYNTHROID [Concomitant]
  37. TRICOR [Concomitant]
  38. TYLENOL W/ CODEINE NO. 3 [Concomitant]
  39. ATIVAN [Concomitant]
  40. LORTAB [Concomitant]
  41. IRON SULFATETHIAMIN COMPOUND TAB [Concomitant]
  42. ALEVE [Concomitant]
  43. ZOFRAN [Concomitant]
  44. NEULASTA [Concomitant]
  45. OXYCODONE HCL [Concomitant]
  46. DEXAMETHASONE [Concomitant]
  47. GABAPENTIN [Concomitant]
  48. MAALOX                                  /NET/ [Concomitant]
  49. TRIMETHOBENZAMIDE HCL [Concomitant]
  50. ZOLPIDEM TARTRATE [Concomitant]
  51. LANSOPRAZOLE [Concomitant]
  52. AMOXICILLIN [Concomitant]
  53. PREGABALIN [Concomitant]
  54. CIPROFLOXACIN [Concomitant]
  55. LIOTHYRONINE SODIUM [Concomitant]
  56. DESOXIMETASONE [Concomitant]
  57. FENOFIBRATE [Concomitant]
  58. CLOBETASOL PROPIONATE [Concomitant]

REACTIONS (51)
  - ABDOMINAL PAIN [None]
  - ABORTION SPONTANEOUS [None]
  - AMNESIA [None]
  - ANAEMIA [None]
  - ARTHRITIS [None]
  - ASTHMA [None]
  - BONE PAIN [None]
  - CAESAREAN SECTION [None]
  - CARDIAC MURMUR [None]
  - CENTRAL VENOUS CATHETERISATION [None]
  - CHEST DISCOMFORT [None]
  - CONSTIPATION [None]
  - DERMATITIS ATOPIC [None]
  - DIABETES MELLITUS [None]
  - DIZZINESS [None]
  - DRUG EXPOSURE DURING PREGNANCY [None]
  - DYSMENORRHOEA [None]
  - DYSURIA [None]
  - ECTOPIC PREGNANCY [None]
  - FALLOPIAN TUBE OPERATION [None]
  - FATIGUE [None]
  - FIBROUS HISTIOCYTOMA [None]
  - GINGIVITIS [None]
  - HAEMANGIOMA OF SKIN [None]
  - HEADACHE [None]
  - HODGKIN'S DISEASE [None]
  - HYPERLIPIDAEMIA [None]
  - HYPERTENSION [None]
  - HYPOAESTHESIA [None]
  - HYPOTHYROIDISM [None]
  - LYMPHADENOPATHY [None]
  - MIGRAINE [None]
  - MUSCULAR WEAKNESS [None]
  - MYALGIA [None]
  - MYOCARDIAL INFARCTION [None]
  - NAUSEA [None]
  - NEUROPATHY PERIPHERAL [None]
  - NIGHT SWEATS [None]
  - OTITIS MEDIA [None]
  - OVARIAN MASS [None]
  - PARAESTHESIA [None]
  - POSTPARTUM HAEMORRHAGE [None]
  - SENSORY DISTURBANCE [None]
  - SINUSITIS [None]
  - SUICIDAL IDEATION [None]
  - ULCER [None]
  - UMBILICAL CORD ABNORMALITY [None]
  - URINARY TRACT DISORDER [None]
  - VAGINAL HAEMORRHAGE [None]
  - VULVAL DISORDER [None]
  - WEIGHT DECREASED [None]
